FAERS Safety Report 24704237 (Version 1)
Quarter: 2024Q4

REPORT INFORMATION
  Report Type: Spontaneous
  Country: HR (occurrence: HR)
  Receive Date: 20241206
  Receipt Date: 20241206
  Transmission Date: 20250114
  Serious: Yes (Death, Other)
  Sender: DECIPHERA PHARMACEUTICALS
  Company Number: HR-DECIPHERA PHARMACEUTICALS LLC-2024HR000988

PATIENT
  Sex: Female

DRUGS (1)
  1. QINLOCK [Suspect]
     Active Substance: RIPRETINIB
     Indication: Gastrointestinal stromal tumour
     Dosage: 150 MILLIGRAM, QD
     Route: 048
     Dates: start: 202406

REACTIONS (2)
  - Intestinal perforation [Fatal]
  - Intestinal metastasis [Unknown]

NARRATIVE: CASE EVENT DATE: 20240101
